FAERS Safety Report 6887682-X (Version None)
Quarter: 2010Q3

REPORT INFORMATION
  Report Type: 
  Country: None (occurrence: None)
  Receive Date: 20100708
  Receipt Date: 20100312
  Transmission Date: 20110219
  Serious: Yes (Other)
  Sender: FDA-Public Use
  Company Number: 2009316355

PATIENT
  Age: 51 Year
  Sex: Female
  Weight: 62.1 kg

DRUGS (3)
  1. CHANTIX [Suspect]
     Dates: start: 20080710, end: 20080810
  2. CHANTIX [Suspect]
     Dates: start: 20090107, end: 20090121
  3. VICODIN [Concomitant]

REACTIONS (2)
  - DEPRESSION [None]
  - SUICIDAL IDEATION [None]
